FAERS Safety Report 10203771 (Version 3)
Quarter: 2014Q2

REPORT INFORMATION
  Report Type: Spontaneous
  Country: US (occurrence: None)
  Receive Date: 20140523
  Receipt Date: 20140605
  Transmission Date: 20141212
  Serious: Yes (Hospitalization, Other)
  Sender: FDA-Public Use
  Company Number: ADR-2014-00872

PATIENT
  Age: 67 Year
  Sex: Male

DRUGS (3)
  1. BACLOFEN [Suspect]
     Indication: PAIN
     Dates: start: 2007
  2. DILAUDID [Suspect]
     Indication: PAIN
  3. BACLOFEN [Suspect]

REACTIONS (6)
  - Mental status changes [None]
  - Drug withdrawal syndrome [None]
  - Agitation [None]
  - Muscle spasticity [None]
  - Incorrect dose administered [None]
  - Subdural haematoma [None]
